FAERS Safety Report 9895611 (Version 1)
Quarter: 2014Q1

REPORT INFORMATION
  Report Type: Spontaneous
  Country: US (occurrence: US)
  Receive Date: 20140213
  Receipt Date: 20140213
  Transmission Date: 20141002
  Serious: No
  Sender: FDA-Public Use
  Company Number: US-BRISTOL-MYERS SQUIBB COMPANY-17384454

PATIENT
  Age: 48 Year
  Sex: Female
  Weight: 72.11 kg

DRUGS (12)
  1. ABATACEPT SUBQ INJECTION 125MG/ML [Suspect]
     Dosage: 1 DF:125MG/1 ML?INJECT 1 PREFILLED SYRINGE
     Route: 058
  2. METHOTREXATE TABS [Suspect]
  3. ARMOUR THYROID [Concomitant]
     Dosage: ARMOUR THYROID 120MG
  4. LYRICA [Concomitant]
     Dosage: LYRICA CAPS 100MG
  5. SAVELLA [Concomitant]
     Dosage: TABS100MG
  6. PROTONIX [Concomitant]
     Dosage: TABS
  7. FOLIC ACID [Concomitant]
     Dosage: TABS
  8. ASPIRIN [Concomitant]
     Dosage: ASPIRIN ADLT TABS 81 MG
  9. NASONEX [Concomitant]
     Dosage: NASONEX SPR 50MCG/AC
  10. CETIRIZINE [Concomitant]
     Dosage: TABS
  11. CALCIUM + VITAMIN D [Concomitant]
     Dosage: TABS
  12. BIOTIN [Concomitant]
     Dosage: BIOTIN 5000 CAPS

REACTIONS (1)
  - Influenza [Unknown]
